FAERS Safety Report 25709697 (Version 1)
Quarter: 2025Q3

REPORT INFORMATION
  Report Type: Other
  Country: IN (occurrence: IN)
  Receive Date: 20250821
  Receipt Date: 20250821
  Transmission Date: 20251021
  Serious: Yes (Other)
  Sender: ESJAY PHARMA
  Company Number: IN-ESJAY PHARMA-000935

PATIENT
  Age: 26 Month
  Sex: Female

DRUGS (1)
  1. CLOBAZAM [Suspect]
     Active Substance: CLOBAZAM
     Indication: Product used for unknown indication

REACTIONS (2)
  - Foetal exposure during pregnancy [Unknown]
  - Autism spectrum disorder [Unknown]
